FAERS Safety Report 6411821-8 (Version None)
Quarter: 2009Q4

REPORT INFORMATION
  Report Type: 
  Country: None (occurrence: None)
  Receive Date: 20091023
  Receipt Date: 20091016
  Transmission Date: 20100525
  Serious: Yes (Hospitalization, Other)
  Sender: FDA-Public Use
  Company Number: FR-BRISTOL-MYERS SQUIBB COMPANY-14827752

PATIENT
  Age: 63 Year
  Sex: Female

DRUGS (6)
  1. GLUCOPHAGE [Suspect]
     Indication: TYPE 2 DIABETES MELLITUS
     Route: 048
     Dates: end: 20090101
  2. BYETTA [Concomitant]
     Indication: TYPE 2 DIABETES MELLITUS
     Route: 058
     Dates: start: 20080301, end: 20090101
  3. DIAMICRON [Concomitant]
     Dosage: TAB
  4. TENORMIN [Concomitant]
     Dosage: TAB
  5. HYPERIUM [Concomitant]
     Dosage: TAB
     Route: 048
  6. INIPOMP [Concomitant]
     Dosage: GASTRO RESISTANT TABS

REACTIONS (8)
  - DECREASED APPETITE [None]
  - DIARRHOEA [None]
  - HYPOTENSION [None]
  - LACTIC ACIDOSIS [None]
  - OVERDOSE [None]
  - RENAL FAILURE ACUTE [None]
  - VOMITING [None]
  - WEIGHT DECREASED [None]
